FAERS Safety Report 6309817-X (Version None)
Quarter: 2009Q3

REPORT INFORMATION
  Report Type: 
  Country: None (occurrence: None)
  Receive Date: 20090814
  Receipt Date: 20090805
  Transmission Date: 20100115
  Serious: Yes (Other)
  Sender: FDA-Public Use
  Company Number: BR-PFIZER INC-2009236549

PATIENT
  Age: 34 Year

DRUGS (1)
  1. DEPO-PROVERA [Suspect]
     Indication: CONTRACEPTION
     Dosage: 150 MG, EVERY 3 MONTHS
     Route: 030
     Dates: start: 20080101

REACTIONS (6)
  - ALOPECIA [None]
  - AMENORRHOEA [None]
  - DEPRESSION [None]
  - HYPOTHYROIDISM [None]
  - METRORRHAGIA [None]
  - MIGRAINE [None]
